FAERS Safety Report 6112920-0 (Version None)
Quarter: 2009Q1

REPORT INFORMATION
  Report Type: 
  Country: None (occurrence: None)
  Receive Date: 20090312
  Receipt Date: 20090225
  Transmission Date: 20090719
  Serious: Yes (Other)
  Sender: FDA-Public Use
  Company Number: PHEH2009US02064

PATIENT
  Sex: Female
  Weight: 87.664 kg

DRUGS (7)
  1. RECLAST [Suspect]
     Dosage: 5 MG, ONCE A YEAR
     Dates: start: 20080303
  2. MULTI-VITAMINS [Concomitant]
     Dosage: UNK
     Dates: start: 20010101
  3. HYDROCHLOROTHIAZIDE [Concomitant]
     Dosage: 25 MG, QD
     Route: 048
     Dates: start: 20010101
  4. CRESTOR [Concomitant]
     Dosage: 40 MG, QHS
     Dates: start: 20040101
  5. NEXIUM [Concomitant]
     Dosage: 40 MG, QD
     Route: 048
     Dates: start: 20070801
  6. FISH OIL [Concomitant]
     Dosage: UNK
     Route: 048
     Dates: start: 20071101
  7. BENICAR [Concomitant]
     Dosage: 40 MG 1/2 TAB DAILY
     Route: 048

REACTIONS (6)
  - ENDODONTIC PROCEDURE [None]
  - INFLUENZA LIKE ILLNESS [None]
  - INTESTINAL RESECTION [None]
  - ORAL DISCOMFORT [None]
  - SINUS DISORDER [None]
  - TOOTH DISORDER [None]
